FAERS Safety Report 7755660-4 (Version None)
Quarter: 2011Q3

REPORT INFORMATION
  Report Type: 
  Country: None (occurrence: None)
  Receive Date: 20110915
  Receipt Date: 20110915
  Transmission Date: 20111222
  Serious: Yes (Life-Threatening, Hospitalization, Disabling, Other)
  Sender: FDA-Public Use
  Company Number: None

PATIENT
  Age: 86 Year
  Sex: Female
  Weight: 49.8957 kg

DRUGS (2)
  1. CIPROFLOXACIN [Suspect]
     Indication: INFECTION
     Dosage: 500 MG / 2 PER DAY 2X/DAY ORAL WITH WATER
     Route: 048
     Dates: start: 20110401, end: 20110410
  2. CIPROFLOXACIN [Suspect]
     Indication: BLADDER DISORDER
     Dosage: 500 MG / 2 PER DAY 2X/DAY ORAL WITH WATER
     Route: 048
     Dates: start: 20110401, end: 20110410

REACTIONS (8)
  - BACK PAIN [None]
  - SWELLING [None]
  - FATIGUE [None]
  - SCREAMING [None]
  - FEELING ABNORMAL [None]
  - MUSCULOSKELETAL PAIN [None]
  - NECK PAIN [None]
  - TENDON RUPTURE [None]
